FAERS Safety Report 5251585-7 (Version None)
Quarter: 2007Q1

REPORT INFORMATION
  Report Type: 
  Country: None (occurrence: None)
  Receive Date: 20070228
  Receipt Date: 20060921
  Transmission Date: 20070707
  Serious: No
  Sender: FDA-Public Use
  Company Number: US-GLAXOSMITHKLINE-A0620969A

PATIENT
  Age: 44 Year
  Sex: Female

DRUGS (4)
  1. LAMICTAL [Suspect]
     Dosage: 75MG VARIABLE DOSE
     Route: 048
     Dates: start: 20060901, end: 20060918
  2. ATENOLOL [Concomitant]
  3. PROZAC [Concomitant]
  4. TRAZODONE HCL [Concomitant]

REACTIONS (6)
  - COUGH [None]
  - DEHYDRATION [None]
  - HYPOTENSION [None]
  - ILL-DEFINED DISORDER [None]
  - PYREXIA [None]
  - RASH [None]
